FAERS Safety Report 8154421-4 (Version None)
Quarter: 2012Q1

REPORT INFORMATION
  Report Type: 
  Country: None (occurrence: None)
  Receive Date: 20120217
  Receipt Date: 20120217
  Transmission Date: 20120608
  Serious: No
  Sender: FDA-Public Use
  Company Number: None

PATIENT
  Age: 60 Year
  Sex: Male
  Weight: 65.9 kg

DRUGS (1)
  1. LOPINAVIR/RITONAVIR [Suspect]
     Dosage: 2 TAB BID PO
     Route: 048
     Dates: start: 20110201, end: 20111206

REACTIONS (1)
  - DIARRHOEA [None]
